FAERS Safety Report 8674452 (Version 67)
Quarter: 2017Q2

REPORT INFORMATION
  Report Type: Report from Study
  Country: CA (occurrence: CA)
  Receive Date: 20120720
  Receipt Date: 20170613
  Transmission Date: 20170830
  Serious: Yes (Hospitalization, Other)
  Sender: FDA-Public Use
  Company Number: CA-ROCHE-1089542

PATIENT
  Age: 79 Year
  Sex: Female
  Weight: 62 kg

DRUGS (11)
  1. NEXIUM [Concomitant]
     Active Substance: ESOMEPRAZOLE MAGNESIUM
  2. AVAPRO [Concomitant]
     Active Substance: IRBESARTAN
  3. COENZYME Q10 COMPLEX (UNK INGREDIENTS) [Concomitant]
  4. ACTEMRA [Suspect]
     Active Substance: TOCILIZUMAB
     Route: 042
     Dates: start: 20131104
  5. PREDNISONE. [Suspect]
     Active Substance: PREDNISONE
     Indication: PRODUCT USED FOR UNKNOWN INDICATION
     Route: 048
  6. ACTEMRA [Suspect]
     Active Substance: TOCILIZUMAB
     Indication: RHEUMATOID ARTHRITIS
     Route: 042
     Dates: start: 20111123
  7. ACTEMRA [Suspect]
     Active Substance: TOCILIZUMAB
     Route: 042
     Dates: start: 20140716, end: 20170518
  8. CALCITE [Concomitant]
     Active Substance: CALCIUM CARBONATE
  9. RITUXAN [Suspect]
     Active Substance: RITUXIMAB
     Indication: RHEUMATOID ARTHRITIS
     Dosage: DAY 1 AND 15
     Route: 042
     Dates: start: 20081202, end: 20081215
  10. SULFASALAZINE. [Concomitant]
     Active Substance: SULFASALAZINE
  11. IMMUNOCAL [Concomitant]

REACTIONS (55)
  - Presyncope [Recovered/Resolved]
  - Spinal cord disorder [Unknown]
  - Oropharyngeal pain [Recovering/Resolving]
  - Hyperhidrosis [Recovering/Resolving]
  - Contusion [Recovering/Resolving]
  - Fatigue [Not Recovered/Not Resolved]
  - Blood pressure systolic increased [Unknown]
  - Blood pressure increased [Unknown]
  - Arthralgia [Not Recovered/Not Resolved]
  - Pain in extremity [Not Recovered/Not Resolved]
  - Nausea [Recovering/Resolving]
  - Weight increased [Unknown]
  - Oxygen saturation decreased [Unknown]
  - Wrist fracture [Not Recovered/Not Resolved]
  - Bronchitis [Unknown]
  - Gastroenteritis [Unknown]
  - Thyroid disorder [Unknown]
  - Skin discolouration [Unknown]
  - Influenza [Recovered/Resolved]
  - Weight decreased [Not Recovered/Not Resolved]
  - Arthropathy [Recovered/Resolved]
  - Asthenia [Not Recovered/Not Resolved]
  - Body temperature decreased [Unknown]
  - Musculoskeletal stiffness [Unknown]
  - Drug ineffective [Unknown]
  - Wound infection [Recovering/Resolving]
  - Headache [Unknown]
  - Malaise [Unknown]
  - Infusion related reaction [Unknown]
  - Influenza [Unknown]
  - Arthropathy [Recovering/Resolving]
  - Cellulitis [Recovered/Resolved]
  - Hypertension [Not Recovered/Not Resolved]
  - Oedema peripheral [Not Recovered/Not Resolved]
  - Hand fracture [Not Recovered/Not Resolved]
  - Cough [Recovering/Resolving]
  - Vomiting [Recovering/Resolving]
  - Cystitis [Not Recovered/Not Resolved]
  - Fatigue [Unknown]
  - Fall [Unknown]
  - Balance disorder [Recovering/Resolving]
  - Cellulitis [Recovered/Resolved]
  - Pain [Recovering/Resolving]
  - Migraine [Unknown]
  - Infection [Unknown]
  - Back pain [Not Recovered/Not Resolved]
  - Urinary tract infection [Recovered/Resolved]
  - Pulmonary embolism [Recovered/Resolved]
  - Limb injury [Unknown]
  - Viral upper respiratory tract infection [Unknown]
  - Pain in extremity [Unknown]
  - Weight decreased [Recovered/Resolved]
  - Pain in extremity [Recovering/Resolving]
  - Musculoskeletal pain [Not Recovered/Not Resolved]
  - Musculoskeletal discomfort [Not Recovered/Not Resolved]

NARRATIVE: CASE EVENT DATE: 20120207
